FAERS Safety Report 15253931 (Version 7)
Quarter: 2020Q1

REPORT INFORMATION
  Report Type: Other
  Country: CA (occurrence: CA)
  Receive Date: 20180808
  Receipt Date: 20200306
  Transmission Date: 20200409
  Serious: Yes (Life-Threatening, Other)
  Sender: FDA-Public Use
  Company Number: CA-ASTELLAS-2018US034940

PATIENT
  Age: 45 Year
  Sex: Female

DRUGS (106)
  1. PROGRAF [Suspect]
     Active Substance: TACROLIMUS
     Dosage: 1000 MG, 2 EVERY 01 HOUR
     Route: 048
  2. PROGRAF [Suspect]
     Active Substance: TACROLIMUS
     Dosage: 2.5 MG, TWICE DAILY (EVERY 12 HOURS)
     Route: 048
  3. PROGRAF [Suspect]
     Active Substance: TACROLIMUS
     Dosage: 2 MG, TWICE DAILY (EVERY 12 HOURS)
     Route: 048
  4. PROGRAF [Suspect]
     Active Substance: TACROLIMUS
     Route: 048
  5. ZENAPAX [Suspect]
     Active Substance: DACLIZUMAB
     Dosage: UNK, UNKNOWN FREQ.
     Route: 042
  6. ANTITHYMOCYTE IMMUNOGLOBULIN (RABBIT) [Suspect]
     Active Substance: LAPINE T-LYMPHOCYTE IMMUNE GLOBULIN
     Route: 065
  7. ANTITHYMOCYTE IMMUNOGLOBULIN (RABBIT) [Suspect]
     Active Substance: LAPINE T-LYMPHOCYTE IMMUNE GLOBULIN
     Route: 065
  8. ENBREL [Suspect]
     Active Substance: ETANERCEPT
     Route: 058
  9. REMICADE [Suspect]
     Active Substance: INFLIXIMAB
     Indication: PRODUCT USED FOR UNKNOWN INDICATION
     Dosage: UNK, UNKNOWN FREQ.
     Route: 042
  10. MYCOPHENOLATE MOFETIL. [Suspect]
     Active Substance: MYCOPHENOLATE MOFETIL
     Route: 048
  11. MYCOPHENOLATE MOFETIL. [Suspect]
     Active Substance: MYCOPHENOLATE MOFETIL
     Route: 048
  12. ANTITHYMOCYTE IMMUNOGLOBULIN [Suspect]
     Active Substance: THYMOCYTE IMMUNE GLOBULIN NOS
     Dosage: UNK, UNKNOWN FREQ.
     Route: 065
  13. PROGRAF [Suspect]
     Active Substance: TACROLIMUS
     Dosage: 2 MG, TWICE DAILY (EVERY 12 HOURS)
     Route: 048
  14. PROGRAF [Suspect]
     Active Substance: TACROLIMUS
     Dosage: 2 MG, TWICE DAILY (EVERY 12 HOURS)
     Route: 048
  15. PROGRAF [Suspect]
     Active Substance: TACROLIMUS
     Route: 048
  16. ANTITHYMOCYTE IMMUNOGLOBULIN (RABBIT) [Suspect]
     Active Substance: LAPINE T-LYMPHOCYTE IMMUNE GLOBULIN
     Route: 065
  17. CELLCEPT [Suspect]
     Active Substance: MYCOPHENOLATE MOFETIL\MYCOPHENOLATE MOFETIL HYDROCHLORIDE
     Dosage: UNK, UNKNOWN FREQ.
     Route: 065
  18. ENBREL [Suspect]
     Active Substance: ETANERCEPT
     Route: 048
  19. ENBREL [Suspect]
     Active Substance: ETANERCEPT
     Route: 058
  20. SULFASALAZINE. [Suspect]
     Active Substance: SULFASALAZINE
     Indication: RHEUMATOID ARTHRITIS
     Route: 042
  21. MYCOPHENOLATE MOFETIL. [Suspect]
     Active Substance: MYCOPHENOLATE MOFETIL
     Indication: TRANSPLANT
     Dosage: 1000 MG, TWICE DAILY (EVERY 12 HOURS)
     Route: 048
  22. MYCOPHENOLATE MOFETIL. [Suspect]
     Active Substance: MYCOPHENOLATE MOFETIL
     Route: 048
  23. MYCOPHENOLATE MOFETIL. [Suspect]
     Active Substance: MYCOPHENOLATE MOFETIL
     Route: 048
  24. PROGRAF [Suspect]
     Active Substance: TACROLIMUS
     Dosage: 2 MG, 2 EVERY ONE HOUR
     Route: 048
  25. PROGRAF [Suspect]
     Active Substance: TACROLIMUS
     Dosage: 2.5 MG, TWICE DAILY (EVERY 12 HOURS)
     Route: 048
  26. PROGRAF [Suspect]
     Active Substance: TACROLIMUS
     Dosage: 3 MG, TWICE DAILY (EVERY 12 HOURS)
     Route: 048
  27. TACROLIMUS. [Suspect]
     Active Substance: TACROLIMUS
     Route: 048
  28. CELLCEPT [Suspect]
     Active Substance: MYCOPHENOLATE MOFETIL\MYCOPHENOLATE MOFETIL HYDROCHLORIDE
     Route: 048
  29. CELLCEPT [Suspect]
     Active Substance: MYCOPHENOLATE MOFETIL\MYCOPHENOLATE MOFETIL HYDROCHLORIDE
     Route: 065
  30. CELLCEPT [Suspect]
     Active Substance: MYCOPHENOLATE MOFETIL\MYCOPHENOLATE MOFETIL HYDROCHLORIDE
     Route: 065
  31. DACLIZUMAB [Suspect]
     Active Substance: DACLIZUMAB
     Dosage: UNK, UNKNOWN FREQ.
     Route: 042
  32. ENBREL [Suspect]
     Active Substance: ETANERCEPT
     Route: 058
  33. REMICADE [Suspect]
     Active Substance: INFLIXIMAB
     Dosage: UNK, UNKNOWN FREQ.
     Route: 065
  34. MYCOPHENOLATE MOFETIL. [Suspect]
     Active Substance: MYCOPHENOLATE MOFETIL
     Route: 048
  35. MYCOPHENOLATE MOFETIL. [Suspect]
     Active Substance: MYCOPHENOLATE MOFETIL
     Route: 065
  36. MYCOPHENOLATE MOFETIL. [Suspect]
     Active Substance: MYCOPHENOLATE MOFETIL
     Route: 065
  37. ANTITHYMOCYTE IMMUNOGLOBULIN [Suspect]
     Active Substance: THYMOCYTE IMMUNE GLOBULIN NOS
     Route: 065
  38. PROGRAF [Suspect]
     Active Substance: TACROLIMUS
     Route: 048
  39. PROGRAF [Suspect]
     Active Substance: TACROLIMUS
     Route: 048
  40. PROGRAF [Suspect]
     Active Substance: TACROLIMUS
     Route: 048
  41. ANTITHYMOCYTE IMMUNOGLOBULIN (RABBIT) [Suspect]
     Active Substance: LAPINE T-LYMPHOCYTE IMMUNE GLOBULIN
     Route: 065
  42. ANTITHYMOCYTE IMMUNOGLOBULIN (RABBIT) [Suspect]
     Active Substance: LAPINE T-LYMPHOCYTE IMMUNE GLOBULIN
     Route: 065
  43. CELLCEPT [Suspect]
     Active Substance: MYCOPHENOLATE MOFETIL\MYCOPHENOLATE MOFETIL HYDROCHLORIDE
     Indication: TRANSPLANT
     Route: 048
  44. DACLIZUMAB [Suspect]
     Active Substance: DACLIZUMAB
     Route: 042
  45. ENBREL [Suspect]
     Active Substance: ETANERCEPT
     Route: 065
  46. ENBREL [Suspect]
     Active Substance: ETANERCEPT
     Route: 058
  47. ENBREL [Suspect]
     Active Substance: ETANERCEPT
     Route: 065
  48. NEORAL [Suspect]
     Active Substance: CYCLOSPORINE
     Indication: TRANSPLANT
     Dosage: 1000 MG, TWICE DAILY (BID)
     Route: 065
  49. MYCOPHENOLATE MOFETIL. [Suspect]
     Active Substance: MYCOPHENOLATE MOFETIL
     Dosage: UNK, UNKNOWN FREQ.
     Route: 065
  50. MYCOPHENOLATE MOFETIL. [Suspect]
     Active Substance: MYCOPHENOLATE MOFETIL
     Dosage: UNK, UNKNOWN FREQ.
     Route: 065
  51. MYCOPHENOLATE MOFETIL. [Suspect]
     Active Substance: MYCOPHENOLATE MOFETIL
     Route: 065
  52. ANTITHYMOCYTE IMMUNOGLOBULIN (HORSE) [Suspect]
     Active Substance: EQUINE THYMOCYTE IMMUNE GLOBULIN
     Indication: TRANSPLANT
     Route: 065
  53. PROGRAF [Suspect]
     Active Substance: TACROLIMUS
     Indication: TRANSPLANT
     Route: 048
  54. PROGRAF [Suspect]
     Active Substance: TACROLIMUS
     Route: 048
  55. PROGRAF [Suspect]
     Active Substance: TACROLIMUS
     Route: 048
  56. PROGRAF [Suspect]
     Active Substance: TACROLIMUS
     Route: 048
  57. PROGRAF [Suspect]
     Active Substance: TACROLIMUS
     Route: 065
  58. TACROLIMUS. [Suspect]
     Active Substance: TACROLIMUS
     Indication: PRODUCT USED FOR UNKNOWN INDICATION
     Dosage: 3 MG, TWICE DAILY (EVERY 12 HOURS)
     Route: 048
  59. ZENAPAX [Suspect]
     Active Substance: DACLIZUMAB
     Indication: TRANSPLANT
     Route: 042
  60. CELLCEPT [Suspect]
     Active Substance: MYCOPHENOLATE MOFETIL\MYCOPHENOLATE MOFETIL HYDROCHLORIDE
     Route: 065
  61. DACLIZUMAB [Suspect]
     Active Substance: DACLIZUMAB
     Dosage: UNK, UNKNOWN FREQ.
     Route: 042
  62. ENBREL [Suspect]
     Active Substance: ETANERCEPT
     Route: 048
  63. ENBREL [Suspect]
     Active Substance: ETANERCEPT
     Route: 058
  64. ANTILYMPHOCYTE IMMUNOGLOBULIN [Suspect]
     Active Substance: THYMOCYTE IMMUNE GLOBULIN NOS
     Indication: PRODUCT USED FOR UNKNOWN INDICATION
     Route: 065
  65. ANTILYMPHOCYTE IMMUNOGLOBULIN (HORSE) [Suspect]
     Active Substance: EQUINE THYMOCYTE IMMUNE GLOBULIN
     Indication: PRODUCT USED FOR UNKNOWN INDICATION
     Route: 065
  66. ANTITHYMOCYTE IMMUNOGLOBULIN [Suspect]
     Active Substance: THYMOCYTE IMMUNE GLOBULIN NOS
     Route: 065
  67. ANTITHYMOCYTE IMMUNOGLOBULIN [Suspect]
     Active Substance: THYMOCYTE IMMUNE GLOBULIN NOS
     Dosage: UNK UNK, UNKNOWN FREQ.
     Route: 065
  68. PROGRAF [Suspect]
     Active Substance: TACROLIMUS
     Dosage: 22 MG, TWICE DAILY (EVERY 12 HOURS)
     Route: 048
  69. PROGRAF [Suspect]
     Active Substance: TACROLIMUS
     Dosage: UNK UNK, UNKNOWN FREQ.
     Route: 048
  70. PROGRAF [Suspect]
     Active Substance: TACROLIMUS
     Dosage: 11.0 MG, UNKNOWN FREQ.
     Route: 048
  71. TACROLIMUS. [Suspect]
     Active Substance: TACROLIMUS
     Dosage: 2.5 MG, TWICE DAILY (EVERY 12 HOURS)
     Route: 048
  72. ANTITHYMOCYTE IMMUNOGLOBULIN (RABBIT) [Suspect]
     Active Substance: LAPINE T-LYMPHOCYTE IMMUNE GLOBULIN
     Indication: TRANSPLANT REJECTION
     Dosage: 3 MG, TWICE DAILY (BID)
     Route: 065
  73. DACLIZUMAB [Suspect]
     Active Substance: DACLIZUMAB
     Route: 042
  74. ENBREL [Suspect]
     Active Substance: ETANERCEPT
     Route: 058
  75. ANTITHYMOCYTE IMMUNOGLOBULIN [Suspect]
     Active Substance: THYMOCYTE IMMUNE GLOBULIN NOS
     Route: 065
  76. ANTITHYMOCYTE IMMUNOGLOBULIN [Suspect]
     Active Substance: THYMOCYTE IMMUNE GLOBULIN NOS
     Route: 065
  77. TEMAZEPAM. [Suspect]
     Active Substance: TEMAZEPAM
     Indication: PRODUCT USED FOR UNKNOWN INDICATION
     Dosage: UNK UNK, UNKNOWN FREQ.
     Route: 065
  78. PROGRAF [Suspect]
     Active Substance: TACROLIMUS
     Dosage: 3 MG, TWICE DAILY (EVERY 12 HOURS)
     Route: 048
  79. PROGRAF [Suspect]
     Active Substance: TACROLIMUS
     Route: 048
  80. PROGRAF [Suspect]
     Active Substance: TACROLIMUS
     Route: 048
  81. PROGRAF [Suspect]
     Active Substance: TACROLIMUS
     Dosage: 3.0 MG, UNKNOWN FREQ.
     Route: 048
  82. TACROLIMUS. [Suspect]
     Active Substance: TACROLIMUS
     Dosage: 2 MG, TWICE DAILY (EVERY 12 HOURS)
     Route: 048
  83. TACROLIMUS. [Suspect]
     Active Substance: TACROLIMUS
     Route: 065
  84. CELLCEPT [Suspect]
     Active Substance: MYCOPHENOLATE MOFETIL\MYCOPHENOLATE MOFETIL HYDROCHLORIDE
     Route: 048
  85. ENBREL [Suspect]
     Active Substance: ETANERCEPT
     Dosage: 25 MG, 4 TIMES DAILY (EVERY 6 HOURS)
     Route: 048
  86. ENBREL [Suspect]
     Active Substance: ETANERCEPT
     Route: 058
  87. RAPAMUNE [Suspect]
     Active Substance: SIROLIMUS
     Indication: TRANSPLANT
     Dosage: 1000 MG, TWICE DAILY (BID) (EVERY 12 HOURS)
     Route: 065
  88. SULFASALAZINE. [Suspect]
     Active Substance: SULFASALAZINE
     Dosage: UNK, UNKNOWN FREQ.
     Route: 065
  89. MYCOPHENOLATE MOFETIL. [Suspect]
     Active Substance: MYCOPHENOLATE MOFETIL
     Dosage: UNK, UNKNOWN FREQ.
     Route: 065
  90. ANTITHYMOCYTE IMMUNOGLOBULIN [Suspect]
     Active Substance: THYMOCYTE IMMUNE GLOBULIN NOS
     Dosage: 6.0 MG/KG, UNKNOWN FREQ.
     Route: 065
  91. PROGRAF [Suspect]
     Active Substance: TACROLIMUS
     Dosage: 3 MG, 2 EVERY 1 HOUR
     Route: 048
  92. PROGRAF [Suspect]
     Active Substance: TACROLIMUS
     Dosage: UNK UNK, UNKNOWN FREQ.
     Route: 048
  93. PROGRAF [Suspect]
     Active Substance: TACROLIMUS
     Route: 048
  94. PROGRAF [Suspect]
     Active Substance: TACROLIMUS
     Route: 048
  95. PROGRAF [Suspect]
     Active Substance: TACROLIMUS
     Dosage: UNK, UNKNOWN FREQ.
     Route: 048
  96. PROGRAF [Suspect]
     Active Substance: TACROLIMUS
     Route: 048
  97. PROGRAF [Suspect]
     Active Substance: TACROLIMUS
     Dosage: 1000.0 MG, UNKNOWN FREQ.
     Route: 048
  98. TACROLIMUS. [Suspect]
     Active Substance: TACROLIMUS
     Route: 048
  99. ZENAPAX [Suspect]
     Active Substance: DACLIZUMAB
     Dosage: UNK, UNKNOWN FREQ.
     Route: 042
  100. DACLIZUMAB [Suspect]
     Active Substance: DACLIZUMAB
     Indication: TRANSPLANT
     Dosage: UNK, UNKNOWN FREQ.
     Route: 042
  101. ENBREL [Suspect]
     Active Substance: ETANERCEPT
     Indication: PRODUCT USED FOR UNKNOWN INDICATION
     Route: 058
  102. ENBREL [Suspect]
     Active Substance: ETANERCEPT
     Route: 058
  103. ENBREL [Suspect]
     Active Substance: ETANERCEPT
     Route: 065
  104. ANTITHYMOCYTE IMMUNOGLOBULIN [Suspect]
     Active Substance: THYMOCYTE IMMUNE GLOBULIN NOS
     Indication: TRANSPLANT
     Route: 065
  105. ANTITHYMOCYTE IMMUNOGLOBULIN [Suspect]
     Active Substance: THYMOCYTE IMMUNE GLOBULIN NOS
     Dosage: 50.0 MG, UNKNOWN FREQ.
     Route: 065
  106. ANTITHYMOCYTE IMMUNOGLOBULIN [Suspect]
     Active Substance: THYMOCYTE IMMUNE GLOBULIN NOS
     Dosage: 60.0 MG/KG, UNKNOWN FREQ.
     Route: 065

REACTIONS (16)
  - Product use issue [Not Recovered/Not Resolved]
  - Condition aggravated [Not Recovered/Not Resolved]
  - Liver function test abnormal [Not Recovered/Not Resolved]
  - Pain [Not Recovered/Not Resolved]
  - Sleep disorder due to general medical condition, insomnia type [Not Recovered/Not Resolved]
  - Pneumonia [Not Recovered/Not Resolved]
  - Overdose [Not Recovered/Not Resolved]
  - Incorrect route of product administration [Not Recovered/Not Resolved]
  - Alopecia [Not Recovered/Not Resolved]
  - Rheumatoid arthritis [Not Recovered/Not Resolved]
  - Transplant dysfunction [Not Recovered/Not Resolved]
  - Drug ineffective [Not Recovered/Not Resolved]
  - Acne [Not Recovered/Not Resolved]
  - Loss of personal independence in daily activities [Not Recovered/Not Resolved]
  - Transplant rejection [Not Recovered/Not Resolved]
  - Ovarian cyst [Not Recovered/Not Resolved]
